FAERS Safety Report 4401024-0 (Version None)
Quarter: 2004Q3

REPORT INFORMATION
  Report Type: 
  Country: None (occurrence: None)
  Receive Date: 20040907
  Receipt Date: 20030924
  Transmission Date: 20050211
  Serious: No
  Sender: FDA-Public Use
  Company Number: US-BRISTOL-MYERS SQUIBB COMPANY-12393302

PATIENT
  Sex: Female

DRUGS (4)
  1. COUMADIN [Suspect]
     Indication: DEEP VEIN THROMBOSIS
     Route: 048
     Dates: start: 20010101
  2. LIPITOR [Concomitant]
  3. NEXIUM [Concomitant]
  4. LOVENOX [Concomitant]

REACTIONS (4)
  - DRUG INEFFECTIVE [None]
  - FEAR [None]
  - GASTROINTESTINAL DISORDER [None]
  - NAUSEA [None]
